FAERS Safety Report 19036979 (Version 1)
Quarter: 2021Q1

REPORT INFORMATION
  Report Type: Spontaneous
  Country: DK (occurrence: DK)
  Receive Date: 20210322
  Receipt Date: 20210322
  Transmission Date: 20210420
  Serious: Yes (Death, Hospitalization, Other)
  Sender: FDA-Public Use
  Company Number: DK-B.I. PHARMACEUTICALS,INC./RIDGEFIELD-2021-BI-091393

PATIENT
  Age: 85 Year
  Sex: Male

DRUGS (8)
  1. PRADAXA [Suspect]
     Active Substance: DABIGATRAN ETEXILATE MESYLATE
     Indication: ATRIAL FIBRILLATION
     Dosage: STRENGTH: 110 MG
     Route: 048
     Dates: start: 20180524
  2. METOPROLOL TARTRATE. [Concomitant]
     Active Substance: METOPROLOL TARTRATE
     Indication: HYPERTENSION
     Dates: start: 20180517
  3. TAMSULOSIN [Concomitant]
     Active Substance: TAMSULOSIN
     Indication: DYSURIA
     Dates: start: 20180518
  4. FOLIMET [Concomitant]
     Active Substance: FOLIC ACID
     Indication: VITAMIN SUPPLEMENTATION
     Dates: start: 20210128
  5. ENALAPRIL KRKA [Concomitant]
     Active Substance: ENALAPRIL MALEATE
     Indication: HYPERTENSION
     Dates: start: 20201105
  6. PREDNISOLONE. [Concomitant]
     Active Substance: PREDNISOLONE
     Indication: RHEUMATIC DISORDER
     Dates: start: 20210115
  7. MIRTAZAPIN [Concomitant]
     Active Substance: MIRTAZAPINE
     Indication: DEPRESSION
     Dates: start: 20201105
  8. KALEORID [Concomitant]
     Active Substance: POTASSIUM CHLORIDE
     Indication: MINERAL SUPPLEMENTATION
     Dates: start: 20180518

REACTIONS (5)
  - Haemorrhage intracranial [Fatal]
  - Facial paresis [Fatal]
  - Hemiparesis [Fatal]
  - Dysarthria [Fatal]
  - Aphasia [Fatal]

NARRATIVE: CASE EVENT DATE: 20210219
